FAERS Safety Report 10637324 (Version 1)
Quarter: 2014Q4

REPORT INFORMATION
  Report Type: Spontaneous
  Country: US (occurrence: None)
  Receive Date: 20141204
  Receipt Date: 20141204
  Transmission Date: 20150529
  Serious: Yes (Disabling)
  Sender: FDA-Public Use
  Company Number: None

PATIENT
  Age: 57 Year
  Sex: Male
  Weight: 65.77 kg

DRUGS (1)
  1. LEVOFLOXACIN 500MG [Suspect]
     Active Substance: LEVOFLOXACIN
     Route: 048
     Dates: start: 20130702, end: 20130703

REACTIONS (4)
  - Impaired work ability [None]
  - Paraesthesia [None]
  - Burning sensation [None]
  - Tendon pain [None]

NARRATIVE: CASE EVENT DATE: 20130703
